FAERS Safety Report 7372422-0 (Version None)
Quarter: 2011Q1

REPORT INFORMATION
  Report Type: 
  Country: None (occurrence: None)
  Receive Date: 20110324
  Receipt Date: 20100426
  Transmission Date: 20110831
  Serious: Yes (Hospitalization, Other)
  Sender: FDA-Public Use
  Company Number: PHHY2010DE24761

PATIENT
  Sex: Female

DRUGS (4)
  1. MODAFINIL [Concomitant]
     Indication: FATIGUE
     Dosage: 1 DF, BID
     Dates: start: 20091201
  2. EXTAVIA [Suspect]
     Indication: MULTIPLE SCLEROSIS
     Dosage: 250 UG/ML, UNK
     Route: 058
     Dates: start: 20100208, end: 20100401
  3. CITALOPRAM HYDROBROMIDE [Concomitant]
     Indication: FATIGUE
     Dosage: 1 DF, BID
     Dates: start: 20091201
  4. AMITRIPTYLINE [Concomitant]
     Indication: TENSION HEADACHE
     Dosage: 1 DF, QHS
     Dates: start: 20100101

REACTIONS (7)
  - DYSPNOEA [None]
  - CSF PRESSURE INCREASED [None]
  - BENIGN INTRACRANIAL HYPERTENSION [None]
  - HEADACHE [None]
  - PULMONARY OEDEMA [None]
  - HYPOAESTHESIA ORAL [None]
  - HYPOAESTHESIA [None]
